FAERS Safety Report 4502288-5 (Version None)
Quarter: 2004Q4

REPORT INFORMATION
  Report Type: 
  Country: None (occurrence: None)
  Receive Date: 20041110
  Receipt Date: 20041103
  Transmission Date: 20050328
  Serious: Yes (Hospitalization, Other)
  Sender: FDA-Public Use
  Company Number: JP-2004-033263

PATIENT
  Age: 72 Year
  Sex: Female

DRUGS (5)
  1. PROSCOPE 300 (IOPROMIDE) [Suspect]
     Indication: COMPUTERISED TOMOGRAM
     Dosage: 80 ML, 1 DOSE, IV BOLUS
     Route: 040
     Dates: start: 20040930, end: 20040930
  2. GLUCOSE [Concomitant]
  3. SENEVACUL (SENNOSIDE A+B) [Concomitant]
  4. MAGCOROL (MAGNESIUM CITRATE) [Concomitant]
  5. BISACODYL (BISACODYL) [Concomitant]

REACTIONS (8)
  - ANAPHYLACTIC SHOCK [None]
  - BLOOD PRESSURE SYSTOLIC DECREASED [None]
  - COUGH [None]
  - CYANOSIS [None]
  - DYSPNOEA [None]
  - OXYGEN SATURATION DECREASED [None]
  - PRURITUS [None]
  - PULSE ABSENT [None]
